FAERS Safety Report 8271983-7 (Version None)
Quarter: 2012Q2

REPORT INFORMATION
  Report Type: 
  Country: None (occurrence: None)
  Receive Date: 20120410
  Receipt Date: 20120328
  Transmission Date: 20120825
  Serious: Yes (Other)
  Sender: FDA-Public Use
  Company Number: AU-MYLANLABS-2012S1006857

PATIENT
  Age: 55 Year
  Sex: Female

DRUGS (10)
  1. METHOTREXATE [Suspect]
     Indication: PSORIATIC ARTHROPATHY
     Dosage: 5 MG/WEEK
     Route: 065
  2. METFORMIN HCL [Concomitant]
     Dosage: 1G T.D.S
     Route: 065
  3. NIFEDIPINE [Concomitant]
     Dosage: 10 MG/DAY
     Route: 065
  4. CANDESARTAN CILEXETIL [Concomitant]
     Dosage: 32 MG/DAY
     Route: 065
  5. SULFASALAZINE [Concomitant]
     Indication: PSORIATIC ARTHROPATHY
     Route: 065
  6. GLICLAZIDE [Concomitant]
     Dosage: 80 MG/DAY
     Route: 065
  7. SODIUM AUROTHIOMALATE [Concomitant]
     Indication: PSORIATIC ARTHROPATHY
     Route: 030
  8. ETANERCEPT [Suspect]
     Indication: PSORIATIC ARTHROPATHY
     Dosage: 50 MG/WEEK
     Route: 065
     Dates: start: 20060301
  9. LEFLUNOMIDE [Concomitant]
     Indication: PSORIATIC ARTHROPATHY
     Route: 065
  10. CYCLOSPORINE [Concomitant]
     Indication: PSORIATIC ARTHROPATHY
     Route: 065

REACTIONS (2)
  - SARCOIDOSIS [None]
  - TUBULOINTERSTITIAL NEPHRITIS [None]
